FAERS Safety Report 6751326-8 (Version None)
Quarter: 2010Q2

REPORT INFORMATION
  Report Type: 
  Country: None (occurrence: None)
  Receive Date: 20100602
  Receipt Date: 20100526
  Transmission Date: 20101027
  Serious: Yes (Hospitalization)
  Sender: FDA-Public Use
  Company Number: US-SANOFI-AVENTIS-2010SA030400

PATIENT
  Age: 82 Year
  Sex: Male

DRUGS (6)
  1. MULTAQ [Suspect]
     Indication: HEART RATE IRREGULAR
     Route: 048
     Dates: start: 20100501, end: 20100526
  2. MULTAQ [Suspect]
     Route: 048
     Dates: start: 20100501, end: 20100526
  3. DIGOXIN [Concomitant]
     Route: 065
     Dates: start: 20100501, end: 20100526
  4. COUMADIN [Concomitant]
  5. METOPROLOL TARTRATE [Concomitant]
  6. TAGAMET [Concomitant]

REACTIONS (6)
  - ABDOMINAL PAIN UPPER [None]
  - ATRIAL FIBRILLATION [None]
  - DYSPNOEA [None]
  - FATIGUE [None]
  - MALAISE [None]
  - OEDEMA PERIPHERAL [None]
